FAERS Safety Report 4355143-8 (Version None)
Quarter: 2004Q2

REPORT INFORMATION
  Report Type: 
  Country: None (occurrence: None)
  Receive Date: 20040510
  Receipt Date: 20040428
  Transmission Date: 20050107
  Serious: Yes (Other)
  Sender: FDA-Public Use
  Company Number: 200410936DE

PATIENT
  Sex: Male

DRUGS (2)
  1. LANTUS [Suspect]
     Indication: DIABETES MELLITUS
     Route: 058
     Dates: end: 20040101
  2. NOVORAPID [Concomitant]
     Indication: DIABETES MELLITUS

REACTIONS (1)
  - PROSTATIC SPECIFIC ANTIGEN INCREASED [None]
